FAERS Safety Report 22294881 (Version 1)
Quarter: 2023Q2

REPORT INFORMATION
  Report Type: Report from Study
  Country: US (occurrence: US)
  Receive Date: 20230508
  Receipt Date: 20230508
  Transmission Date: 20230721
  Serious: Yes (Other)
  Sender: FDA-Public Use
  Company Number: US-MYLANLABS-2023M1048164

PATIENT
  Sex: Female

DRUGS (4)
  1. TRASTUZUMAB [Suspect]
     Active Substance: TRASTUZUMAB
     Indication: Endometrial cancer
     Dosage: 8 MILLIGRAM/KILOGRAM, OVER 90 MINUTES (INTRAVENOUS INFUSION)
     Route: 042
  2. TRASTUZUMAB [Suspect]
     Active Substance: TRASTUZUMAB
     Dosage: 6 MILLIGRAM/KILOGRAM, Q3W, OVER 30-60 MINUTES (INTRAVENOUS INFUSION)
     Route: 042
  3. PERTUZUMAB [Suspect]
     Active Substance: PERTUZUMAB
     Indication: Endometrial cancer
     Dosage: 840 MILLIGRAM, OVER 60 MINUTES (INTRAVENOUS INFUSION)
     Route: 042
  4. PERTUZUMAB [Suspect]
     Active Substance: PERTUZUMAB
     Dosage: 420 MILLIGRAM, OVER 30-60 MINUTES (INTRAVENOUS INFUSION)
     Route: 042

REACTIONS (1)
  - Muscular weakness [Unknown]
